FAERS Safety Report 5778783-8 (Version None)
Quarter: 2008Q2

REPORT INFORMATION
  Report Type: 
  Country: None (occurrence: None)
  Receive Date: 20080617
  Receipt Date: 20080604
  Transmission Date: 20081010
  Serious: Yes (Death)
  Sender: FDA-Public Use
  Company Number: US023614

PATIENT
  Age: 31 Year
  Sex: Female

DRUGS (2)
  1. FENTORA [Suspect]
     Indication: MIGRAINE
     Dosage: UNK BUCCAL
     Route: 002
  2. OPIOID [Concomitant]

REACTIONS (3)
  - ACCIDENTAL EXPOSURE [None]
  - DRUG PRESCRIBING ERROR [None]
  - DRUG TOXICITY [None]
